FAERS Safety Report 14072454 (Version 1)
Quarter: 2017Q4

REPORT INFORMATION
  Report Type: Spontaneous
  Country: US (occurrence: None)
  Receive Date: 20171010
  Receipt Date: 20171010
  Transmission Date: 20180321
  Serious: Yes (Hospitalization)
  Sender: FDA-Public Use
  Company Number: None

PATIENT
  Age: 46 Year
  Sex: Female

DRUGS (2)
  1. ERIVEDGE [Suspect]
     Active Substance: VISMODEGIB
     Indication: SKIN CANCER
     Dosage: 1 CAP (150MG) DAILY PO
     Route: 048
     Dates: start: 20170414, end: 201710
  2. FLUOROUTACIL [Concomitant]
     Active Substance: FLUOROURACIL

REACTIONS (2)
  - Heart rate increased [None]
  - Muscle spasms [None]

NARRATIVE: CASE EVENT DATE: 201709
